FAERS Safety Report 4906502-3 (Version None)
Quarter: 2006Q1

REPORT INFORMATION
  Report Type: 
  Country: None (occurrence: None)
  Receive Date: 20060209
  Receipt Date: 20041208
  Transmission Date: 20060701
  Serious: Yes (Hospitalization, Disabling, Other)
  Sender: FDA-Public Use
  Company Number: US-MERCK-0412USA01091

PATIENT
  Sex: Female

DRUGS (4)
  1. VIOXX [Suspect]
     Indication: ARTHRITIS
     Route: 048
     Dates: start: 20010508
  2. METHOTREXATE [Concomitant]
     Route: 030
  3. METHOTREXATE [Concomitant]
     Route: 030
  4. FOLIC ACID [Concomitant]
     Route: 048

REACTIONS (13)
  - ANAEMIA OF CHRONIC DISEASE [None]
  - CARDIOVASCULAR DISORDER [None]
  - CHEST PAIN [None]
  - CORONARY ARTERY DISEASE [None]
  - DEPRESSION [None]
  - DIZZINESS [None]
  - INTERVERTEBRAL DISC DEGENERATION [None]
  - JOINT EFFUSION [None]
  - MUSCLE SPASMS [None]
  - MYOCARDIAL INFARCTION [None]
  - OBESITY [None]
  - OSTEOARTHRITIS [None]
  - VERTIGO [None]
